FAERS Safety Report 5772326-0 (Version None)
Quarter: 2008Q2

REPORT INFORMATION
  Report Type: 
  Country: None (occurrence: None)
  Receive Date: 20080611
  Receipt Date: 20080530
  Transmission Date: 20081010
  Serious: Yes (Hospitalization)
  Sender: FDA-Public Use
  Company Number: 100#08#2008-03017

PATIENT
  Age: 53 Year
  Sex: Female

DRUGS (2)
  1. DICLOFENAC SODIUM [Suspect]
     Indication: ARTHROPATHY
     Dosage: ORAL
     Route: 048
  2. DICLOFENAC SODIUM [Suspect]
     Indication: MYALGIA
     Dosage: ORAL
     Route: 048

REACTIONS (2)
  - GLOMERULONEPHRITIS MINIMAL LESION [None]
  - RENAL TUBULAR NECROSIS [None]
